FAERS Safety Report 23251808 (Version 1)
Quarter: 2023Q4

REPORT INFORMATION
  Report Type: Spontaneous
  Country: CN (occurrence: CN)
  Receive Date: 20231201
  Receipt Date: 20231201
  Transmission Date: 20240110
  Serious: Yes (Other)
  Sender: FDA-Public Use
  Company Number: None

PATIENT
  Age: 55 Year
  Sex: Female
  Weight: 55 kg

DRUGS (9)
  1. CYCLOPHOSPHAMIDE [Suspect]
     Active Substance: CYCLOPHOSPHAMIDE
     Indication: Breast cancer female
     Dosage: 0.9 G, ONE TIME IN ONE DAY, DILUTED WITH 50 ML OF 0.9 % SODIUM CHLORIDE, D2
     Route: 041
     Dates: start: 20231104, end: 20231104
  2. CYCLOPHOSPHAMIDE [Suspect]
     Active Substance: CYCLOPHOSPHAMIDE
     Indication: Adenocarcinoma
  3. SODIUM CHLORIDE [Suspect]
     Active Substance: SODIUM CHLORIDE
     Indication: Medication dilution
     Dosage: (0.9%), 50 ML, ONE TIME IN ONE DAY, USED TO DILUTE 0.9 G OF CYCLOPHOSPHAMIDE, D2
     Route: 041
     Dates: start: 20231104, end: 20231104
  4. SODIUM CHLORIDE [Suspect]
     Active Substance: SODIUM CHLORIDE
     Dosage: 250 ML, ONE TIME IN ONE DAY, D2, USED TO DILUTE 330 MG OF TRASTUZUMAB
     Route: 041
     Dates: start: 20231104, end: 20231104
  5. DEXTROSE [Suspect]
     Active Substance: DEXTROSE\DEXTROSE MONOHYDRATE
     Indication: Medication dilution
     Dosage: 600 ML, ONE TIME IN ONE DAY, USED TO DILUTE 210 MG OF PACLITAXEL LIPOSOME, D1
     Route: 041
     Dates: start: 20231103, end: 20231103
  6. TRASTUZUMAB [Suspect]
     Active Substance: TRASTUZUMAB
     Indication: Breast cancer female
     Dosage: 330 MG, ONE TIME IN ONE DAY, DILUTED WITH 250 ML OF 0.9 % SODIUM CHLORIDE, D2
     Route: 041
     Dates: start: 20231104, end: 20231104
  7. TRASTUZUMAB [Suspect]
     Active Substance: TRASTUZUMAB
     Indication: Adenocarcinoma
  8. PACLITAXEL [Suspect]
     Active Substance: PACLITAXEL
     Indication: Breast cancer female
     Dosage: 210 MG, ONE TIME IN ONE DAY, DILUTED WITH 600 ML OF 5 % GLUCOSE, D1
     Route: 041
     Dates: start: 20231103, end: 20231103
  9. PACLITAXEL [Suspect]
     Active Substance: PACLITAXEL
     Indication: Adenocarcinoma

REACTIONS (1)
  - Myelosuppression [Unknown]

NARRATIVE: CASE EVENT DATE: 20231104
